FAERS Safety Report 6410856-9 (Version None)
Quarter: 2009Q4

REPORT INFORMATION
  Report Type: 
  Country: None (occurrence: None)
  Receive Date: 20091022
  Receipt Date: 20091019
  Transmission Date: 20100525
  Serious: Yes (Hospitalization, Other)
  Sender: FDA-Public Use
  Company Number: ES-AVENTIS-200921771GDDC

PATIENT
  Age: 53 Year
  Sex: Male

DRUGS (6)
  1. TAXOTERE [Suspect]
     Indication: GASTRIC ULCER
     Dosage: DOSE: UNKNOWN
     Dates: start: 20090527, end: 20090527
  2. FLUOROURACIL [Concomitant]
     Indication: GASTRIC ULCER
     Dosage: DOSE: UNKNOWN
     Dates: start: 20090527, end: 20090530
  3. CISPLATIN [Concomitant]
     Indication: GASTRIC ULCER
     Dosage: DOSE: UNKNOWN
     Dates: start: 20090527, end: 20090527
  4. EMEND [Concomitant]
     Indication: PROPHYLAXIS
     Dosage: DOSE: UNKNOWN
     Dates: start: 20090527, end: 20090528
  5. NEULASTA [Concomitant]
     Indication: PROPHYLAXIS
     Dosage: DOSE: PREFILLED SYRINGE
     Dates: start: 20090527, end: 20090527
  6. METHYLPREDNISOLONE [Concomitant]
     Indication: PROPHYLAXIS
     Dosage: DOSE: VIALS
     Dates: start: 20090527, end: 20090530

REACTIONS (1)
  - TUBULOINTERSTITIAL NEPHRITIS [None]
